FAERS Safety Report 18626804 (Version 1)
Quarter: 2020Q4

REPORT INFORMATION
  Report Type: Spontaneous
  Country: TW (occurrence: TW)
  Receive Date: 20201217
  Receipt Date: 20201217
  Transmission Date: 20210114
  Serious: Yes (Other)
  Sender: FDA-Public Use
  Company Number: NVSC2020TW324483

PATIENT
  Age: 63 Year
  Sex: Female

DRUGS (10)
  1. CISPLATIN. [Suspect]
     Active Substance: CISPLATIN
     Indication: ENDOMETRIAL CANCER
     Dosage: UNK
     Route: 065
  2. PAZOPANIB [Concomitant]
     Active Substance: PAZOPANIB
     Indication: PRODUCT USED FOR UNKNOWN INDICATION
     Dosage: 200 MG, QD
     Route: 048
     Dates: start: 20200727, end: 20200811
  3. PAZOPANIB [Concomitant]
     Active Substance: PAZOPANIB
     Dosage: 200 MG, QD
     Route: 048
     Dates: start: 20200917, end: 20201008
  4. BEVACIZUMAB. [Concomitant]
     Active Substance: BEVACIZUMAB
     Indication: PRODUCT USED FOR UNKNOWN INDICATION
     Dosage: UNK
     Route: 065
     Dates: start: 20201023, end: 20201116
  5. PAZOPANIB [Concomitant]
     Active Substance: PAZOPANIB
     Dosage: 200 MG, QD
     Route: 048
     Dates: start: 20200827, end: 20200907
  6. CARBOPLATIN. [Suspect]
     Active Substance: CARBOPLATIN
     Indication: ENDOMETRIAL CANCER
     Dosage: UNK
     Route: 065
     Dates: start: 20201023, end: 20201116
  7. TAXOL [Concomitant]
     Active Substance: PACLITAXEL
     Indication: PRODUCT USED FOR UNKNOWN INDICATION
     Dosage: UNK
     Route: 065
  8. AVASTIN [Concomitant]
     Active Substance: BEVACIZUMAB
     Indication: PRODUCT USED FOR UNKNOWN INDICATION
     Dosage: UNK
     Route: 065
     Dates: start: 201910, end: 20201116
  9. DOCETAXEL. [Suspect]
     Active Substance: DOCETAXEL
     Indication: ENDOMETRIAL CANCER
     Dosage: UNK
     Route: 065
     Dates: start: 20201023, end: 20201116
  10. PAZOPANIB [Concomitant]
     Active Substance: PAZOPANIB
     Dosage: 200 MG, QD
     Route: 048
     Dates: end: 20201018

REACTIONS (5)
  - Second primary malignancy [Unknown]
  - Endometrial cancer recurrent [Unknown]
  - Lymphadenopathy mediastinal [Unknown]
  - Ovarian cancer [Unknown]
  - Metastases to lung [Unknown]
